FAERS Safety Report 22366092 (Version 1)
Quarter: 2023Q2

REPORT INFORMATION
  Report Type: Spontaneous
  Country: IT (occurrence: IT)
  Receive Date: 20230525
  Receipt Date: 20230525
  Transmission Date: 20230722
  Serious: Yes (Other)
  Sender: FDA-Public Use
  Company Number: IT-009507513-2305ITA007467

PATIENT
  Age: 70 Year
  Sex: Male

DRUGS (7)
  1. ISENTRESS [Suspect]
     Active Substance: RALTEGRAVIR POTASSIUM
     Dosage: 400 MILLIGRAM, BID
     Route: 048
     Dates: start: 2007, end: 2020
  2. ISENTRESS [Suspect]
     Active Substance: RALTEGRAVIR POTASSIUM
     Dosage: 1200 MILLIGRAM, QD
     Route: 048
     Dates: start: 2020
  3. PIFELTRO [Suspect]
     Active Substance: DORAVIRINE
     Indication: HIV infection
     Dates: start: 202210
  4. COBICISTAT\DARUNAVIR ETHANOLATE [Suspect]
     Active Substance: COBICISTAT\DARUNAVIR ETHANOLATE
     Indication: HIV infection
     Dates: start: 2020, end: 202210
  5. PREZISTA [Concomitant]
     Active Substance: DARUNAVIR ETHANOLATE
     Dosage: 600 BID
     Dates: end: 2020
  6. NORVIR [Concomitant]
     Active Substance: RITONAVIR
     Dosage: 100 MILLIGRAM, QD
     Dates: end: 2020
  7. MARAVIROC [Concomitant]
     Active Substance: MARAVIROC
     Dosage: 150 MILLIGRAM
     Dates: end: 2020

REACTIONS (4)
  - Acute kidney injury [Unknown]
  - Virologic failure [Unknown]
  - Drug resistance [Unknown]
  - Viral load abnormal [Unknown]

NARRATIVE: CASE EVENT DATE: 20200101
